FAERS Safety Report 7439363-1 (Version None)
Quarter: 2011Q2

REPORT INFORMATION
  Report Type: 
  Country: None (occurrence: None)
  Receive Date: 20110427
  Receipt Date: 20110421
  Transmission Date: 20111010
  Serious: No
  Sender: FDA-Public Use
  Company Number: US-PFIZER INC-2011087426

PATIENT
  Sex: Male
  Weight: 95.2 kg

DRUGS (4)
  1. PRAVASTATIN [Concomitant]
     Dosage: UNK
  2. COLESTIPOL HYDROCHLORIDE [Suspect]
     Indication: BLOOD TRIGLYCERIDES
     Dosage: UNK
     Route: 048
     Dates: start: 20110419
  3. ATENOLOL [Concomitant]
     Dosage: UNK
  4. LOSARTAN [Concomitant]
     Dosage: UNK

REACTIONS (3)
  - INAPPROPRIATE SCHEDULE OF DRUG ADMINISTRATION [None]
  - WRONG TECHNIQUE IN DRUG USAGE PROCESS [None]
  - FOREIGN BODY [None]
